FAERS Safety Report 19383352 (Version 1)
Quarter: 2021Q2

REPORT INFORMATION
  Report Type: Spontaneous
  Country: US (occurrence: US)
  Receive Date: 20210607
  Receipt Date: 20210607
  Transmission Date: 20210717
  Serious: Yes (Hospitalization, Other)
  Sender: FDA-Public Use
  Company Number: US-ALEMBIC PHARMACUETICALS LIMITED-2021SCAL000276

PATIENT

DRUGS (2)
  1. BUPROPION HYDROCHLORIDE. [Suspect]
     Active Substance: BUPROPION HYDROCHLORIDE
     Indication: PRODUCT USED FOR UNKNOWN INDICATION
     Dosage: UNK
     Route: 065
  2. CITALOPRAM [Suspect]
     Active Substance: CITALOPRAM HYDROBROMIDE
     Indication: PRODUCT USED FOR UNKNOWN INDICATION
     Dosage: UNK
     Route: 065

REACTIONS (11)
  - Distributive shock [Unknown]
  - Shock [Unknown]
  - Seizure [Unknown]
  - Drug level increased [Unknown]
  - Circulatory collapse [Unknown]
  - Acidosis [Unknown]
  - Tachyarrhythmia [Unknown]
  - Overdose [Unknown]
  - Cardiac arrest [Unknown]
  - Vasoplegia syndrome [Unknown]
  - Cardiogenic shock [Unknown]
